FAERS Safety Report 9806262 (Version 1)
Quarter: 2014Q1

REPORT INFORMATION
  Report Type: Spontaneous
  Country: JP (occurrence: JP)
  Receive Date: 20140109
  Receipt Date: 20140109
  Transmission Date: 20141002
  Serious: Yes (Other)
  Sender: FDA-Public Use
  Company Number: PHHY2014JP001870

PATIENT
  Sex: Female

DRUGS (2)
  1. LOCHOL [Suspect]
     Indication: HYPERLIPIDAEMIA
     Route: 048
  2. LOCHOL [Suspect]
     Dosage: 20 MG, DAILY
     Route: 048

REACTIONS (5)
  - Cystitis [Recovered/Resolved]
  - Haematuria [Unknown]
  - Chromaturia [Unknown]
  - Myalgia [Unknown]
  - Malaise [Unknown]
